FAERS Safety Report 18834651 (Version 3)
Quarter: 2021Q1

REPORT INFORMATION
  Report Type: Report from Study
  Country: FR (occurrence: FR)
  Receive Date: 20210203
  Receipt Date: 20210324
  Transmission Date: 20210419
  Serious: Yes (Death)
  Sender: FDA-Public Use
  Company Number: FR-ROCHE-2361073

PATIENT
  Age: 65 Year
  Sex: Female
  Weight: 89.7 kg

DRUGS (4)
  1. ATEZOLIZUMAB. [Suspect]
     Active Substance: ATEZOLIZUMAB
     Indication: OVARIAN CANCER
     Dosage: DATE OF MOST RECENT DOSE OF ATEZOLIZUMAB (1200 MG) PRIOR TO SAE ONSET: 04/JUL/2019
     Route: 042
     Dates: start: 20190207
  2. BEVACIZUMAB. [Suspect]
     Active Substance: BEVACIZUMAB
     Indication: OVARIAN CANCER
     Dosage: DATE OF MOST RECENT DOSE (1400 MG) OF BEVACIZUMAB PRIOR TO SAE ONSET: 13/JUN/2019
     Route: 042
     Dates: start: 20190207
  3. BLINDED ASPIRIN [Suspect]
     Active Substance: ASPIRIN
     Indication: OVARIAN CANCER
     Dosage: ON 16/JUL/2019, RECEIVED LAST DOSE OF BLINDED ACETYLSALICYLIC ACID
     Route: 048
     Dates: start: 20190207
  4. PROPANOLOL [Concomitant]
     Active Substance: PROPRANOLOL HYDROCHLORIDE
     Indication: HYPERTENSION
     Route: 048
     Dates: start: 2019, end: 20190716

REACTIONS (2)
  - Cardiac arrest [Fatal]
  - Haematemesis [Fatal]

NARRATIVE: CASE EVENT DATE: 20190716
